FAERS Safety Report 9937688 (Version 1)
Quarter: 2014Q1

REPORT INFORMATION
  Report Type: Spontaneous
  Country: US (occurrence: US)
  Receive Date: 20140303
  Receipt Date: 20140303
  Transmission Date: 20141002
  Serious: No
  Sender: FDA-Public Use
  Company Number: US-BIOGENIDEC-2014BI015690

PATIENT
  Sex: Female

DRUGS (10)
  1. TECFIDERA [Suspect]
     Indication: MULTIPLE SCLEROSIS
     Route: 048
     Dates: start: 201306
  2. KLONOPIN [Concomitant]
  3. BACLOFEN [Concomitant]
  4. LEVOTHYROXINE [Concomitant]
  5. ADDERALL [Concomitant]
  6. VITAMIN B12 [Concomitant]
  7. EQL OMEGA 3 FISH OIL [Concomitant]
  8. PREVACID [Concomitant]
  9. VITAMIN D3 [Concomitant]
  10. CVS PROBIOTIC [Concomitant]

REACTIONS (2)
  - Depression [Not Recovered/Not Resolved]
  - Dizziness [Unknown]
